FAERS Safety Report 5175287-0 (Version None)
Quarter: 2006Q4

REPORT INFORMATION
  Report Type: 
  Country: None (occurrence: None)
  Receive Date: 20061211
  Receipt Date: 20061211
  Transmission Date: 20070319
  Serious: Yes (Hospitalization)
  Sender: FDA-Public Use
  Company Number: None

PATIENT
  Age: 63 Year
  Sex: Male
  Weight: 80.7403 kg

DRUGS (9)
  1. AMIODARONE HCL [Suspect]
     Indication: VENTRICULAR FIBRILLATION
     Dosage: SEE IMAGE
     Route: 042
     Dates: start: 20061026, end: 20061031
  2. AMIODARONE HCL [Suspect]
     Indication: VENTRICULAR TACHYCARDIA
     Dosage: SEE IMAGE
     Route: 042
     Dates: start: 20061026, end: 20061031
  3. ORAL MEXILITINE [Concomitant]
  4. IV LIDOCAINE [Concomitant]
  5. IV MAGNESIUM SULFATE [Concomitant]
  6. IV ANTIBIOTICS [Concomitant]
  7. CEFTRIAXONE [Concomitant]
  8. CIPROFLOXACIN [Concomitant]
  9. VANCOMYCIN [Concomitant]

REACTIONS (2)
  - INFUSION SITE PHLEBITIS [None]
  - VENTRICULAR TACHYCARDIA [None]
